FAERS Safety Report 7198583-4 (Version None)
Quarter: 2010Q4

REPORT INFORMATION
  Report Type: 
  Country: None (occurrence: None)
  Receive Date: 20101227
  Receipt Date: 20101216
  Transmission Date: 20110411
  Serious: Yes (Other)
  Sender: FDA-Public Use
  Company Number: US-JNJFOC-20101207586

PATIENT
  Sex: Female
  Weight: 77.11 kg

DRUGS (5)
  1. DURAGESIC-50 [Suspect]
     Indication: PAIN
     Route: 062
  2. FENTANYL-100 [Suspect]
     Indication: PAIN
     Dosage: NDC#0781-7113-55
     Route: 062
  3. FENTANYL-100 [Suspect]
     Dosage: NDC#0781-7113-55
     Route: 062
  4. FENTANYL-100 [Suspect]
     Dosage: NDC#0781-7243-55
     Route: 062
  5. PERCOCET [Concomitant]
     Indication: PAIN
     Route: 065

REACTIONS (8)
  - APPLICATION SITE PRURITUS [None]
  - BACK PAIN [None]
  - BEDRIDDEN [None]
  - DRUG DOSE OMISSION [None]
  - DRUG INEFFECTIVE [None]
  - INCORRECT DRUG ADMINISTRATION DURATION [None]
  - PAIN [None]
  - WEIGHT INCREASED [None]
